FAERS Safety Report 7068134-3 (Version None)
Quarter: 2010Q4

REPORT INFORMATION
  Report Type: 
  Country: None (occurrence: None)
  Receive Date: 20101028
  Receipt Date: 20101019
  Transmission Date: 20110411
  Serious: Yes (Other)
  Sender: FDA-Public Use
  Company Number: PHHY2010CO70761

PATIENT
  Sex: Female

DRUGS (1)
  1. SANDOSTATIN LAR [Suspect]
     Indication: ACROMEGALY
     Dosage: 20 MG,
     Route: 030
     Dates: start: 20101015

REACTIONS (4)
  - DIZZINESS [None]
  - HEADACHE [None]
  - RASH [None]
  - SYNCOPE [None]
